FAERS Safety Report 9985423 (Version 1)
Quarter: 2014Q1

REPORT INFORMATION
  Report Type: Report from Study
  Country: US (occurrence: US)
  Receive Date: 20140307
  Receipt Date: 20140307
  Transmission Date: 20141002
  Serious: No
  Sender: FDA-Public Use
  Company Number: US-ABBVIE-14P-163-1185889-00

PATIENT
  Age: 60 Year
  Sex: Male

DRUGS (19)
  1. HUMIRA [Suspect]
     Indication: PSORIATIC ARTHROPATHY
     Dates: start: 201309
  2. PROPRANOLOL [Suspect]
     Indication: PRODUCT USED FOR UNKNOWN INDICATION
  3. PROPRANOLOL [Suspect]
     Dates: start: 201312
  4. ATORVASTATIN [Concomitant]
     Indication: BLOOD CHOLESTEROL
     Route: 048
  5. METFORMIN [Concomitant]
     Indication: DIABETES MELLITUS
     Dosage: WITH FOOD
  6. GLIPIZIDE [Concomitant]
     Indication: DIABETES MELLITUS
     Dosage: 30 MINUTES BEFORE BREAKFAST AND DINNER
     Route: 048
  7. INSULIN [Concomitant]
     Indication: DIABETES MELLITUS
     Dosage: AT NIGHT
  8. LISINOPRIL [Concomitant]
     Indication: HYPERTENSION
     Dosage: AT BEDTIME
     Route: 048
  9. CLOPIDOGREL [Concomitant]
     Indication: CARDIAC DISORDER
     Route: 048
  10. CLOPIDOGREL [Concomitant]
     Indication: STENT PLACEMENT
  11. FENOFIBRATE [Concomitant]
     Indication: PRODUCT USED FOR UNKNOWN INDICATION
     Dosage: WITH FOOD
  12. CARVEDILOL [Concomitant]
     Indication: HYPERTENSION
     Route: 048
  13. CARVEDILOL [Concomitant]
     Indication: CARDIAC DISORDER
  14. FLUOXETINE [Concomitant]
     Indication: DEPRESSION
     Route: 048
  15. FAMOTIDINE [Concomitant]
     Indication: GASTROOESOPHAGEAL REFLUX DISEASE
     Dosage: TWO IN ONE DAY
     Route: 048
  16. METHOCARBAMOL [Concomitant]
     Indication: MUSCLE SPASMS
     Dosage: THRICE IN A DAY
  17. NTG [Concomitant]
     Indication: PRODUCT USED FOR UNKNOWN INDICATION
     Dosage: EVERY MORNING-PLACE IN AM AND REMOVE PM BEFORE BED.
  18. STOOL SOFTENER [Concomitant]
     Indication: CONSTIPATION
     Dosage: OTC
  19. ASA [Concomitant]
     Indication: PRODUCT USED FOR UNKNOWN INDICATION

REACTIONS (4)
  - Family stress [Recovering/Resolving]
  - Skin exfoliation [Recovering/Resolving]
  - Arthralgia [Recovered/Resolved]
  - Tremor [Unknown]
